FAERS Safety Report 7816970-5 (Version None)
Quarter: 2011Q4

REPORT INFORMATION
  Report Type: 
  Country: None (occurrence: None)
  Receive Date: 20111017
  Receipt Date: 20111012
  Transmission Date: 20120403
  Serious: Yes (Hospitalization)
  Sender: FDA-Public Use
  Company Number: IT-BRISTOL-MYERS SQUIBB COMPANY-16112716

PATIENT
  Age: 76 Year
  Sex: Male

DRUGS (7)
  1. RANITIDINE [Concomitant]
     Route: 048
  2. RISEDRONATE SODIUM [Concomitant]
     Route: 048
  3. LASIX [Concomitant]
     Route: 048
  4. NATECAL D [Concomitant]
     Route: 048
  5. COUMADIN [Suspect]
     Indication: ATRIAL FIBRILLATION
     Dates: start: 20021001, end: 20110925
  6. RAMIPRIL [Concomitant]
     Route: 048
  7. HUMALOG [Concomitant]

REACTIONS (1)
  - PULMONARY EMBOLISM [None]
